FAERS Safety Report 8018267-X (Version None)
Quarter: 2012Q1

REPORT INFORMATION
  Report Type: 
  Country: None (occurrence: None)
  Receive Date: 20120103
  Receipt Date: 20111223
  Transmission Date: 20120608
  Serious: Yes (Life-Threatening)
  Sender: FDA-Public Use
  Company Number: IT-TEVA-315437ISR

PATIENT
  Sex: Female

DRUGS (7)
  1. NEURONTIN [Concomitant]
     Indication: ANALGESIC THERAPY
     Dosage: 1200 MILLIGRAM;
     Route: 048
  2. DEXAMETHASONE SODIUM PHOSPHATE [Concomitant]
     Indication: ANAPHYLAXIS PROPHYLAXIS
     Dosage: 4 MILLIGRAM;
     Route: 042
     Dates: start: 20111215, end: 20111215
  3. ZOFRAN [Concomitant]
     Indication: PROPHYLAXIS OF NAUSEA AND VOMITING
     Dosage: 8 MILLIGRAM;
     Route: 042
     Dates: start: 20111215, end: 20111215
  4. RANIDIL [Concomitant]
     Indication: PROPHYLAXIS AGAINST GASTROINTESTINAL ULCER
     Dosage: 1 GRAM;
     Route: 042
     Dates: start: 20111215, end: 20111215
  5. ETOPOSIDE [Suspect]
     Indication: SMALL CELL LUNG CANCER EXTENSIVE STAGE
     Dosage: 180 MILLIGRAM;
     Route: 042
     Dates: start: 20111215, end: 20111215
  6. OXYCONTIN [Concomitant]
     Indication: ANALGESIC THERAPY
     Dosage: 60 MILLIGRAM;
     Route: 048
  7. LANSOPRAZOLE [Concomitant]
     Indication: PROPHYLAXIS AGAINST GASTROINTESTINAL ULCER
     Dosage: 30 MILLIGRAM;
     Route: 048

REACTIONS (4)
  - CYANOSIS [None]
  - VOMITING [None]
  - DYSPNOEA [None]
  - CHOKING SENSATION [None]
